FAERS Safety Report 13873943 (Version 1)
Quarter: 2017Q3

REPORT INFORMATION
  Report Type: Spontaneous
  Country: US (occurrence: US)
  Receive Date: 20170816
  Receipt Date: 20170816
  Transmission Date: 20171127
  Serious: Yes (Hospitalization, Other)
  Sender: FDA-Public Use
  Company Number: US-ASTRAZENECA-2004UW00690

PATIENT
  Age: 80 Year
  Sex: Male
  Weight: 74.8 kg

DRUGS (8)
  1. ROSUVASTATIN. [Suspect]
     Active Substance: ROSUVASTATIN
     Indication: BLOOD CHOLESTEROL INCREASED
     Dosage: 10.0MG UNKNOWN
     Route: 048
  2. WARFARIN [Concomitant]
     Active Substance: WARFARIN
  3. VITAMINS NOS [Concomitant]
     Active Substance: VITAMINS
  4. ROSUVASTATIN. [Suspect]
     Active Substance: ROSUVASTATIN
     Indication: BLOOD CHOLESTEROL INCREASED
     Dosage: 5.0MG UNKNOWN
     Route: 048
  5. PROSCAR [Concomitant]
     Active Substance: FINASTERIDE
  6. ROSUVASTATIN. [Suspect]
     Active Substance: ROSUVASTATIN
     Indication: BLOOD CHOLESTEROL INCREASED
     Dosage: GENERIC 5MG ONCE DAILY  UNKNOWN
     Route: 048
     Dates: start: 2015, end: 2015
  7. ROSUVASTATIN. [Suspect]
     Active Substance: ROSUVASTATIN
     Indication: BLOOD CHOLESTEROL INCREASED
     Dosage: 5.0MG UNKNOWN
     Route: 048
     Dates: start: 2010, end: 2015
  8. CIALIS [Concomitant]
     Active Substance: TADALAFIL
     Dates: start: 201706

REACTIONS (6)
  - Product substitution issue [Unknown]
  - Hypoacusis [Not Recovered/Not Resolved]
  - Joint stiffness [Recovered/Resolved]
  - Transient ischaemic attack [Recovered/Resolved]
  - Mitral valve prolapse [Not Recovered/Not Resolved]
  - Movement disorder [Recovered/Resolved]

NARRATIVE: CASE EVENT DATE: 2015
